FAERS Safety Report 9929450 (Version 3)
Quarter: 2014Q1

REPORT INFORMATION
  Report Type: Spontaneous
  Country: FR (occurrence: FR)
  Receive Date: 20140227
  Receipt Date: 20140320
  Transmission Date: 20141002
  Serious: Yes (Death, Hospitalization)
  Sender: FDA-Public Use
  Company Number: FR-B.I. PHARMACEUTICALS,INC./RIDGEFIELD-2014-BI-08195FF

PATIENT
  Age: 81 Year
  Sex: Male

DRUGS (4)
  1. PRADAXA [Suspect]
     Indication: ATRIAL FIBRILLATION
     Dosage: 300 MG
     Route: 048
     Dates: end: 20140131
  2. DIGOXINE [Concomitant]
     Dosage: 0.25 MG
     Route: 048
  3. COTAREG 160MG/25MG [Concomitant]
     Route: 048
  4. CRESTOR [Concomitant]
     Dosage: 10 MG
     Route: 048

REACTIONS (1)
  - Haemorrhagic stroke [Fatal]
